FAERS Safety Report 4464196-8 (Version None)
Quarter: 2004Q4

REPORT INFORMATION
  Report Type: 
  Country: None (occurrence: None)
  Receive Date: 20041001
  Receipt Date: 20040924
  Transmission Date: 20050328
  Serious: Yes (Hospitalization)
  Sender: FDA-Public Use
  Company Number: US-GLAXOSMITHKLINE-A0527318A

PATIENT
  Age: 41 Year
  Sex: Male

DRUGS (3)
  1. WELLBUTRIN [Suspect]
     Indication: DEPRESSION
     Dosage: 450MG PER DAY
     Route: 048
     Dates: start: 20040401, end: 20040901
  2. ZOLOFT [Suspect]
  3. TRILEPTAL [Suspect]

REACTIONS (8)
  - APATHY [None]
  - DRUG INEFFECTIVE [None]
  - OVERDOSE [None]
  - PHARMACEUTICAL PRODUCT COMPLAINT [None]
  - SLEEP DISORDER [None]
  - STOOL ANALYSIS ABNORMAL [None]
  - SUICIDE ATTEMPT [None]
  - THINKING ABNORMAL [None]
